FAERS Safety Report 22703438 (Version 3)
Quarter: 2024Q2

REPORT INFORMATION
  Report Type: Spontaneous
  Country: US (occurrence: US)
  Receive Date: 20230713
  Receipt Date: 20240430
  Transmission Date: 20240715
  Serious: Yes (Death)
  Sender: FDA-Public Use
  Company Number: US-BIOGEN-2023BI01215769

PATIENT
  Age: 64 Year
  Sex: Male

DRUGS (1)
  1. PLEGRIDY [Suspect]
     Active Substance: PEGINTERFERON BETA-1A
     Indication: Multiple sclerosis
     Dosage: INJECT 1 PEN (125MCG) SUBCUTANEOUSLY EVERY 14 DAYS
     Route: 050
     Dates: start: 20161012, end: 20230701

REACTIONS (7)
  - Death [Fatal]
  - General physical health deterioration [Unknown]
  - Aspiration [Unknown]
  - Weight decreased [Unknown]
  - Cardiovascular disorder [Unknown]
  - Skin ulcer [Unknown]
  - Cardiac disorder [Unknown]

NARRATIVE: CASE EVENT DATE: 20230701
